FAERS Safety Report 9554763 (Version 8)
Quarter: 2014Q2

REPORT INFORMATION
  Report Type: Report from Study
  Country: GB (occurrence: GB)
  Receive Date: 20130926
  Receipt Date: 20140510
  Transmission Date: 20141212
  Serious: Yes (Hospitalization)
  Sender: FDA-Public Use
  Company Number: GB-ROCHE-1280419

PATIENT
  Age: 28 Year
  Sex: Female
  Weight: 59.1 kg

DRUGS (12)
  1. BEVACIZUMAB [Suspect]
     Indication: COLON CANCER
     Route: 042
     Dates: start: 20130816
  2. CAPECITABINE [Suspect]
     Indication: CHEMOTHERAPY
     Dosage: FREQUENCY: BD FOR 2 OUT OF EVERY 3 WEEK CYCLE
     Route: 048
     Dates: start: 20130726, end: 20130920
  3. OXALIPLATIN [Concomitant]
     Indication: CHEMOTHERAPY
     Route: 042
     Dates: start: 20130726
  4. ONDANSETRON [Concomitant]
     Route: 042
     Dates: start: 20130726
  5. DEXAMETHASONE [Concomitant]
     Dosage: TDS FOR 3 DAYS, 3 WEEKLY.
     Route: 042
     Dates: start: 20130726
  6. DEXAMETHASONE [Concomitant]
     Dosage: TDS FOR 3 DAYS, 3 WEEKLY
     Route: 048
     Dates: start: 20130726
  7. APREPITANT [Concomitant]
     Dosage: DOSE: 125MG/80MG, FREQUENCY: 3 WEEKLY
     Route: 048
     Dates: start: 20130816
  8. DOMPERIDON [Concomitant]
     Route: 048
     Dates: start: 20130726
  9. LOPERAMIDE [Concomitant]
     Indication: DIARRHOEA
     Route: 048
     Dates: start: 20130726
  10. CYCLIZINE [Concomitant]
     Route: 048
     Dates: start: 20130906
  11. ORAMORPH [Concomitant]
     Indication: ANALGESIC THERAPY
     Route: 048
     Dates: start: 201306
  12. HYOSCINE BUTYLBROMIDE [Concomitant]
     Indication: ABDOMINAL PAIN
     Route: 048
     Dates: start: 201308

REACTIONS (4)
  - Enteritis [Recovered/Resolved with Sequelae]
  - Abdominal pain [Recovered/Resolved]
  - Vomiting [Recovered/Resolved with Sequelae]
  - Constipation [Recovered/Resolved]
